FAERS Safety Report 11721374 (Version 1)
Quarter: 2015Q4

REPORT INFORMATION
  Report Type: Not Available
  Country: CA (occurrence: CA)
  Receive Date: 20151111
  Receipt Date: 20151111
  Transmission Date: 20160304
  Serious: Yes (Hospitalization)
  Sender: FDA-Public Use
  Company Number: CA-ANIPHARMA-2015-CA-000001

PATIENT
  Age: 32 Year
  Sex: Female

DRUGS (1)
  1. LITHIUM CARBONATE (NON-SPECIFIC) [Suspect]
     Active Substance: LITHIUM
     Dosage: 900 MG DAILY

REACTIONS (2)
  - Glomerulonephritis minimal lesion [Unknown]
  - Acute kidney injury [Recovered/Resolved]
